FAERS Safety Report 7279522-4 (Version None)
Quarter: 2011Q1

REPORT INFORMATION
  Report Type: 
  Country: None (occurrence: None)
  Receive Date: 20110208
  Receipt Date: 20110125
  Transmission Date: 20110831
  Serious: No
  Sender: FDA-Public Use
  Company Number: US-BIOGENIDEC-2011BI003813

PATIENT
  Age: 39 Year
  Sex: Male

DRUGS (1)
  1. TYSABRI [Suspect]
     Indication: MULTIPLE SCLEROSIS
     Route: 042
     Dates: start: 20101102

REACTIONS (6)
  - BACK PAIN [None]
  - DEPRESSION [None]
  - SKIN BURNING SENSATION [None]
  - WEIGHT INCREASED [None]
  - RASH [None]
  - HEADACHE [None]
